FAERS Safety Report 7534809-2 (Version None)
Quarter: 2011Q2

REPORT INFORMATION
  Report Type: 
  Country: None (occurrence: None)
  Receive Date: 20110609
  Receipt Date: 20080818
  Transmission Date: 20111010
  Serious: Yes (Death, Hospitalization, Other)
  Sender: FDA-Public Use
  Company Number: PHHY2008CA11544

PATIENT
  Sex: Male

DRUGS (2)
  1. HALOPERIDOL [Concomitant]
  2. CLOZAPINE [Suspect]
     Indication: SCHIZOPHRENIA
     Dosage: 500 MG, UNK
     Route: 048
     Dates: start: 19951127, end: 20080614

REACTIONS (4)
  - SEPSIS [None]
  - MALAISE [None]
  - LIVER DISORDER [None]
  - DEATH [None]
